FAERS Safety Report 22314624 (Version 1)
Quarter: 2023Q2

REPORT INFORMATION
  Report Type: Spontaneous
  Country: JP (occurrence: JP)
  Receive Date: 20230512
  Receipt Date: 20230512
  Transmission Date: 20230722
  Serious: Yes (Other)
  Sender: FDA-Public Use
  Company Number: JP-GLAXOSMITHKLINE-JPCH2023020322

PATIENT

DRUGS (1)
  1. VOLTAREN XR [Suspect]
     Active Substance: DICLOFENAC SODIUM
     Indication: Musculoskeletal stiffness
     Dosage: UNK
     Route: 061
     Dates: start: 202304, end: 20230504

REACTIONS (5)
  - Haemorrhage [Recovered/Resolved]
  - Dyspnoea [Recovered/Resolved]
  - Thirst [Recovered/Resolved]
  - Muscular weakness [Recovered/Resolved]
  - Malaise [Unknown]

NARRATIVE: CASE EVENT DATE: 20230101
